FAERS Safety Report 18924140 (Version 2)
Quarter: 2021Q1

REPORT INFORMATION
  Report Type: Spontaneous
  Country: AU (occurrence: AU)
  Receive Date: 20210222
  Receipt Date: 20210308
  Transmission Date: 20210420
  Serious: Yes (Hospitalization)
  Sender: FDA-Public Use
  Company Number: AU-BAYER-2021-067705

PATIENT
  Age: 30 Year
  Sex: Female

DRUGS (2)
  1. YASMIN [Suspect]
     Active Substance: DROSPIRENONE\ETHINYL ESTRADIOL
     Indication: DYSMENORRHOEA
     Dosage: UNK
     Route: 048
     Dates: start: 201907, end: 20200109
  2. YAZ [Suspect]
     Active Substance: DROSPIRENONE\ETHINYL ESTRADIOL
     Indication: DYSMENORRHOEA
     Dosage: UNK
     Route: 048
     Dates: start: 201901, end: 201906

REACTIONS (10)
  - Lymphadenopathy [Not Recovered/Not Resolved]
  - Depression [None]
  - Herpes zoster [None]
  - Ovarian cyst [Recovered/Resolved]
  - Product use in unapproved indication [None]
  - Off label use [None]
  - Anxiety [None]
  - Post-traumatic stress disorder [None]
  - Dysmenorrhoea [None]
  - Breast enlargement [None]

NARRATIVE: CASE EVENT DATE: 201901
